FAERS Safety Report 11259611 (Version 3)
Quarter: 2015Q3

REPORT INFORMATION
  Report Type: Report from Study
  Country: US (occurrence: US)
  Receive Date: 20150710
  Receipt Date: 20150828
  Transmission Date: 20151125
  Serious: Yes (Hospitalization, Other)
  Sender: FDA-Public Use
  Company Number: US-PFIZER INC-2015218255

PATIENT
  Age: 10 Year
  Sex: Male
  Weight: 49 kg

DRUGS (4)
  1. TOPOTECAN [Suspect]
     Active Substance: TOPOTECAN\TOPOTECAN HYDROCHLORIDE
     Indication: EWING^S SARCOMA
     Dosage: 0.75 MG/M2 (DAYS 1 -5, TOTAL DOSE ADMINISTERED 5 MG)
     Route: 042
     Dates: start: 20150427, end: 20150619
  2. CRIZOTINIB [Suspect]
     Active Substance: CRIZOTINIB
     Indication: EWING^S SARCOMA
     Dosage: 215 MG/M2 (DAYS 1-21, TOTAL DOSE ADMINISTERED 8700 MG)
     Dates: start: 20150427, end: 20150629
  3. CYCLOPHOSPHAMIDE. [Suspect]
     Active Substance: CYCLOPHOSPHAMIDE
     Indication: EWING^S SARCOMA
     Dosage: 250 MG/M2 (DAYS 1 -5, TOTAL DOSE ADMINISTERED 1700 MG)
     Route: 042
     Dates: start: 20150427, end: 20150619
  4. NEULASTA [Concomitant]
     Active Substance: PEGFILGRASTIM
     Dosage: UNK
     Dates: start: 20150622

REACTIONS (3)
  - Hypokalaemia [Recovered/Resolved]
  - Platelet count decreased [Recovered/Resolved]
  - Anaemia [Recovered/Resolved]

NARRATIVE: CASE EVENT DATE: 20150626
